FAERS Safety Report 5540661-7 (Version None)
Quarter: 2007Q4

REPORT INFORMATION
  Report Type: 
  Country: None (occurrence: None)
  Receive Date: 20071129
  Receipt Date: 20070829
  Transmission Date: 20080405
  Serious: Yes (Hospitalization, Other)
  Sender: FDA-Public Use
  Company Number: US200708006406

PATIENT
  Age: 14 Year
  Sex: Female
  Weight: 56.2 kg

DRUGS (4)
  1. ZYPREXA [Suspect]
     Indication: BIPOLAR DISORDER
     Dosage: 2.5 MG, EACH EVENING, ORAL; 17.5 MG, OTHER, ORAL
     Route: 048
     Dates: start: 20070827, end: 20070827
  2. ZYPREXA [Suspect]
     Indication: BIPOLAR DISORDER
     Dosage: 2.5 MG, EACH EVENING, ORAL; 17.5 MG, OTHER, ORAL
     Route: 048
     Dates: start: 20070201
  3. ETHANOL (ETHANOL) [Concomitant]
  4. CANNABIS (CANNABIS SATIVA) [Concomitant]

REACTIONS (5)
  - ANGER [None]
  - DEPRESSION [None]
  - DRUG INEFFECTIVE [None]
  - INTENTIONAL OVERDOSE [None]
  - PSYCHOTIC DISORDER [None]
